FAERS Safety Report 4441622-1 (Version None)
Quarter: 2004Q3

REPORT INFORMATION
  Report Type: 
  Country: None (occurrence: None)
  Receive Date: 20040907
  Receipt Date: 20040722
  Transmission Date: 20050211
  Serious: No
  Sender: FDA-Public Use
  Company Number: 200412412JP

PATIENT
  Age: 38 Year
  Sex: Female

DRUGS (9)
  1. KETEK [Suspect]
     Indication: BRONCHITIS
     Route: 048
     Dates: start: 20040716, end: 20040717
  2. KETEK [Suspect]
     Indication: PULMONARY TUBERCULOSIS
     Route: 048
     Dates: start: 20040716, end: 20040717
  3. MUCODYNE [Concomitant]
     Indication: BRONCHITIS
     Route: 048
     Dates: start: 20040714, end: 20040717
  4. ASTOMIN [Concomitant]
     Route: 048
     Dates: start: 20040701, end: 20040717
  5. FLAVERIC [Concomitant]
     Route: 048
     Dates: start: 20040714, end: 20040717
  6. THEO-DUR [Concomitant]
     Route: 048
     Dates: start: 20040714, end: 20040717
  7. MEIACT [Concomitant]
     Indication: BRONCHITIS
     Route: 048
     Dates: start: 20040701
  8. SURGAM [Concomitant]
     Route: 048
     Dates: start: 20040701
  9. ORADOL [Concomitant]
     Route: 048
     Dates: start: 20040701

REACTIONS (6)
  - ASTHENIA [None]
  - BLOOD ALKALINE PHOSPHATASE INCREASED [None]
  - BLOOD CREATINE PHOSPHOKINASE INCREASED [None]
  - MALAISE [None]
  - RED BLOOD CELL COUNT DECREASED [None]
  - RHABDOMYOLYSIS [None]
